FAERS Safety Report 10419708 (Version 1)
Quarter: 2014Q3

REPORT INFORMATION
  Report Type: Spontaneous
  Country: US (occurrence: None)
  Receive Date: 20140827
  Receipt Date: 20140827
  Transmission Date: 20150326
  Serious: Yes (Other)
  Sender: FDA-Public Use
  Company Number: 2014SCAL000053

PATIENT
  Age: 66 Year
  Sex: Female

DRUGS (6)
  1. ALBUTEROL /00139502/ (SALBUTAMOL SULFATE) [Concomitant]
  2. ANTIHYPERTENSIVES [Concomitant]
     Active Substance: UNSPECIFIED INGREDIENT
  3. ASPIRIN (ACETYLSALICYLIC ACID) [Concomitant]
     Active Substance: ASPIRIN
  4. IPRATROPIUM [Concomitant]
     Active Substance: IPRATROPIUM
  5. METRONIDAZOLE. [Suspect]
     Active Substance: METRONIDAZOLE
     Indication: CLOSTRIDIUM DIFFICILE INFECTION
  6. SIMVASTATIN. [Concomitant]
     Active Substance: SIMVASTATIN

REACTIONS (4)
  - Parkinsonism [None]
  - Leukoencephalopathy [None]
  - Ataxia [None]
  - Dysarthria [None]
